FAERS Safety Report 8452011 (Version 3)
Quarter: 2012Q4

REPORT INFORMATION
  Report Type: Report from Study
  Country: CA (occurrence: CA)
  Receive Date: 20120309
  Receipt Date: 20121218
  Transmission Date: 20130627
  Serious: Yes (Other)
  Sender: FDA-Public Use
  Company Number: CA-ABBOTT-11P-028-0712854-00

PATIENT
  Sex: Male
  Weight: 78.54 kg

DRUGS (1)
  1. LUPRON DEPOT 30 MG [Suspect]
     Indication: PROSTATE CANCER
     Dates: start: 20080727

REACTIONS (1)
  - Prostate cancer metastatic [Unknown]
